FAERS Safety Report 4865045-6 (Version None)
Quarter: 2005Q4

REPORT INFORMATION
  Report Type: 
  Country: None (occurrence: None)
  Receive Date: 20051219
  Receipt Date: 20051206
  Transmission Date: 20060501
  Serious: Yes (Hospitalization)
  Sender: FDA-Public Use
  Company Number: 2005146727

PATIENT
  Age: 13 Year
  Sex: Male
  Weight: 44.6 kg

DRUGS (9)
  1. VIAGRA [Suspect]
     Indication: PULMONARY HYPERTENSION
     Dosage: 60 MG (20 MG, 3 IN 1 D), ORAL
     Route: 048
     Dates: start: 20040201
  2. LASIX [Concomitant]
  3. DIGOXIN [Concomitant]
  4. WARFARIN (WARFARIN) [Concomitant]
  5. PROCYLIN (BERAPROST SODIUM) [Concomitant]
  6. CLARITHROMYCIN [Concomitant]
  7. MUCOSOLVAN (AMBROXOL HYDROCHLORIDE) [Concomitant]
  8. MUCODYNE (CARBOCISTEINE) [Concomitant]
  9. POLARAMINE [Concomitant]

REACTIONS (11)
  - CHEST PAIN [None]
  - COUGH [None]
  - DEPRESSED LEVEL OF CONSCIOUSNESS [None]
  - DISORIENTATION [None]
  - HEART RATE INCREASED [None]
  - MALAISE [None]
  - NOCTIPHOBIA [None]
  - PALLOR [None]
  - PHARYNGOLARYNGEAL PAIN [None]
  - PYREXIA [None]
  - SLEEP TERROR [None]
